FAERS Safety Report 24708118 (Version 1)
Quarter: 2024Q4

REPORT INFORMATION
  Report Type: Spontaneous
  Country: CH (occurrence: CH)
  Receive Date: 20241206
  Receipt Date: 20241206
  Transmission Date: 20250115
  Serious: Yes (Hospitalization)
  Sender: JOHNSON AND JOHNSON
  Company Number: CH-JNJFOC-20241212601

PATIENT
  Age: 74 Year
  Sex: Female

DRUGS (2)
  1. TRABECTEDIN [Suspect]
     Active Substance: TRABECTEDIN
     Indication: Leiomyosarcoma metastatic
     Dosage: TOTAL DOSE ADMINISTERED 1.4 MG
     Route: 042
     Dates: start: 20241015
  2. DOXORUBICIN [Suspect]
     Active Substance: DOXORUBICIN
     Indication: Uterine leiomyosarcoma

REACTIONS (3)
  - Adverse event [Recovered/Resolved]
  - Off label use [Unknown]
  - Product use issue [Unknown]
